FAERS Safety Report 12935251 (Version 1)
Quarter: 2016Q4

REPORT INFORMATION
  Report Type: Spontaneous
  Country: US (occurrence: US)
  Receive Date: 20161114
  Receipt Date: 20161114
  Transmission Date: 20170207
  Serious: No
  Sender: FDA-Public Use
  Company Number: US-JAZZ-2016-US-018347

PATIENT
  Sex: Male

DRUGS (20)
  1. XYREM [Suspect]
     Active Substance: SODIUM OXYBATE
     Indication: NARCOLEPSY
     Dosage: 3 G, BID
     Route: 048
     Dates: start: 201305, end: 201309
  2. XYREM [Suspect]
     Active Substance: SODIUM OXYBATE
     Dosage: 4.5 G, SECOND DOSE
     Route: 048
     Dates: start: 201309, end: 201402
  3. XYREM [Suspect]
     Active Substance: SODIUM OXYBATE
     Dosage: 4.5 G, BID
     Route: 048
     Dates: start: 201402
  4. CELEBREX [Concomitant]
     Active Substance: CELECOXIB
  5. KIRKLAND SIGNATURE ALLERCLEAR [Concomitant]
     Active Substance: LORATADINE
  6. OXYCODONE AND ACETAMINOPHEN [Concomitant]
     Active Substance: ACETAMINOPHEN\OXYCODONE HYDROCHLORIDE
  7. ALBUTEROL SULFATE. [Concomitant]
     Active Substance: ALBUTEROL SULFATE
  8. GLUCOSAMINE + CHONDROITIN          /01430901/ [Concomitant]
  9. NEURONTIN [Concomitant]
     Active Substance: GABAPENTIN
  10. NUVIGIL [Concomitant]
     Active Substance: ARMODAFINIL
  11. OMEPRAZOLE. [Concomitant]
     Active Substance: OMEPRAZOLE
  12. ZANAFLEX [Concomitant]
     Active Substance: TIZANIDINE HYDROCHLORIDE
  13. PROTRIPTYLINE HCL [Concomitant]
  14. SOMA [Concomitant]
     Active Substance: CARISOPRODOL
  15. NAPROXEN. [Concomitant]
     Active Substance: NAPROXEN
  16. TRAMADOL HCL [Concomitant]
     Active Substance: TRAMADOL HYDROCHLORIDE
  17. ALEVE [Concomitant]
     Active Substance: NAPROXEN SODIUM
  18. XYREM [Suspect]
     Active Substance: SODIUM OXYBATE
     Indication: CATAPLEXY
     Dosage: 3 G, FIRST DOSE
     Route: 048
     Dates: start: 201309, end: 201402
  19. GABAPENTIN. [Suspect]
     Active Substance: GABAPENTIN
     Indication: PRODUCT USED FOR UNKNOWN INDICATION
  20. MULTIVITAMINS                      /00116001/ [Concomitant]

REACTIONS (1)
  - Nausea [Unknown]
